FAERS Safety Report 4638055-1 (Version None)
Quarter: 2005Q2

REPORT INFORMATION
  Report Type: 
  Country: None (occurrence: None)
  Receive Date: 20050415
  Receipt Date: 20050329
  Transmission Date: 20051028
  Serious: Yes (Hospitalization, Other)
  Sender: FDA-Public Use
  Company Number: US_0503114885

PATIENT
  Age: 41 Year
  Sex: Female
  Weight: 57 kg

DRUGS (11)
  1. CYMBALTA [Suspect]
     Indication: DEPRESSION
     Dosage: 60 MG/1 IN THE MORNING
     Dates: start: 20040913
  2. QUINNE [Concomitant]
  3. LEXAPRO [Concomitant]
  4. VISTARIL [Concomitant]
  5. ULTRAM [Concomitant]
  6. KLONOPIN [Concomitant]
  7. LASIX [Concomitant]
  8. XANAX (ALPRAZOLAM DUM) [Concomitant]
  9. ZEBUTAL [Concomitant]
  10. PROMETHAZINE [Concomitant]
  11. ESGIC-PLUS [Concomitant]

REACTIONS (18)
  - ANOXIC ENCEPHALOPATHY [None]
  - ARRHYTHMIA [None]
  - BODY TEMPERATURE DECREASED [None]
  - COMA [None]
  - DECREASED APPETITE [None]
  - HYPOTENSION [None]
  - HYPOTHERMIA [None]
  - METABOLIC ACIDOSIS [None]
  - MULTIPLE DRUG OVERDOSE [None]
  - OEDEMA MOUTH [None]
  - PNEUMONIA ASPIRATION [None]
  - RESPIRATORY DISTRESS [None]
  - RESPIRATORY FAILURE [None]
  - RESPIRATORY RATE DECREASED [None]
  - SHOCK [None]
  - SUICIDE ATTEMPT [None]
  - SWOLLEN TONGUE [None]
  - WEIGHT DECREASED [None]
